FAERS Safety Report 21337642 (Version 2)
Quarter: 2022Q4

REPORT INFORMATION
  Report Type: Spontaneous
  Country: US (occurrence: US)
  Receive Date: 20220915
  Receipt Date: 20221025
  Transmission Date: 20230113
  Serious: No
  Sender: FDA-Public Use
  Company Number: US-BoehringerIngelheim-2022-BI-192052

PATIENT
  Sex: Female

DRUGS (2)
  1. COMBIVENT RESPIMAT [Suspect]
     Active Substance: ALBUTEROL SULFATE\IPRATROPIUM BROMIDE
     Indication: Panic attack
     Dosage: 4 PUFFS DAILY PRN?FORM OF ADMIN: INHALATION SPRAY
  2. COMBIVENT RESPIMAT [Suspect]
     Active Substance: ALBUTEROL SULFATE\IPRATROPIUM BROMIDE
     Indication: Hypersensitivity

REACTIONS (4)
  - Off label use [Unknown]
  - Intentional product use issue [Unknown]
  - Migraine [Unknown]
  - Product complaint [Unknown]
